FAERS Safety Report 17747539 (Version 2)
Quarter: 2020Q2

REPORT INFORMATION
  Report Type: Spontaneous
  Country: ES (occurrence: ES)
  Receive Date: 20200505
  Receipt Date: 20200612
  Transmission Date: 20200714
  Serious: Yes (Other)
  Sender: FDA-Public Use
  Company Number: ES-ELI_LILLY_AND_COMPANY-ES202004009710

PATIENT
  Age: 63 Year
  Sex: Male

DRUGS (2)
  1. TALTZ [Suspect]
     Active Substance: IXEKIZUMAB
     Indication: PSORIASIS
     Dosage: 160 MG WEEK 0
     Route: 065
     Dates: start: 20191023
  2. TALTZ [Suspect]
     Active Substance: IXEKIZUMAB
     Dosage: 80MG EVERY TWO WEEKS FOR THE FIRST 12 WEEKS
     Route: 065

REACTIONS (1)
  - Malignant melanoma [Unknown]
